FAERS Safety Report 9928652 (Version 1)
Quarter: 2014Q1

REPORT INFORMATION
  Report Type: Spontaneous
  Country: FI (occurrence: FI)
  Receive Date: 20140227
  Receipt Date: 20140227
  Transmission Date: 20141002
  Serious: Yes (Death, Other)
  Sender: FDA-Public Use
  Company Number: PHHY2014FI019824

PATIENT
  Age: 70 Year
  Sex: Male

DRUGS (4)
  1. DIAZEPAM [Suspect]
     Indication: EPILEPSY
     Route: 042
  2. OXAZEPAM [Suspect]
  3. TEMAZEPAM [Suspect]
  4. TRIMETHOPRIM [Suspect]

REACTIONS (4)
  - Toxicity to various agents [Fatal]
  - Loss of consciousness [Recovering/Resolving]
  - Dyspnoea [Recovering/Resolving]
  - Unresponsive to stimuli [Recovering/Resolving]
